FAERS Safety Report 9340524 (Version 2)
Quarter: 2013Q2

REPORT INFORMATION
  Report Type: Spontaneous
  Country: JP (occurrence: JP)
  Receive Date: 20130610
  Receipt Date: 20130617
  Transmission Date: 20140414
  Serious: Yes (Hospitalization)
  Sender: FDA-Public Use
  Company Number: JP-PFIZER INC-2013170016

PATIENT
  Age: 5 Decade
  Sex: Male

DRUGS (1)
  1. CARDENALIN [Suspect]
     Dosage: 2 MG, 1X/DAY
     Route: 048

REACTIONS (2)
  - Lacunar infarction [Unknown]
  - Eosinophil count increased [Unknown]
